FAERS Safety Report 15939280 (Version 1)
Quarter: 2019Q1

REPORT INFORMATION
  Report Type: Spontaneous
  Country: BR (occurrence: BR)
  Receive Date: 20190208
  Receipt Date: 20190208
  Transmission Date: 20190417
  Serious: Yes (Other)
  Sender: FDA-Public Use
  Company Number: BR-BAYER-2019-024030

PATIENT
  Age: 77 Year
  Sex: Male

DRUGS (2)
  1. ASPIRINA PREVENT 100 MG [Suspect]
     Active Substance: ASPIRIN
     Indication: ANTIPLATELET THERAPY
     Dosage: UNK
     Dates: start: 2015
  2. ASPIRINA PREVENT 100 MG [Suspect]
     Active Substance: ASPIRIN
     Indication: STENT PLACEMENT

REACTIONS (3)
  - Rash macular [None]
  - Traumatic haemorrhage [None]
  - Capillary fragility [None]
